FAERS Safety Report 18164300 (Version 4)
Quarter: 2024Q1

REPORT INFORMATION
  Report Type: Spontaneous
  Country: US (occurrence: US)
  Receive Date: 20200818
  Receipt Date: 20240208
  Transmission Date: 20240410
  Serious: Yes (Other)
  Sender: FDA-Public Use
  Company Number: US-GILEAD-2020-0490121

PATIENT
  Age: 58 Year
  Sex: Female
  Weight: 63.5 kg

DRUGS (54)
  1. ATRIPLA [Suspect]
     Active Substance: EFAVIRENZ\EMTRICITABINE\TENOFOVIR DISOPROXIL FUMARATE
     Indication: HIV infection
     Dosage: UNK
     Route: 048
     Dates: start: 201611, end: 201805
  2. ATRIPLA [Suspect]
     Active Substance: EFAVIRENZ\EMTRICITABINE\TENOFOVIR DISOPROXIL FUMARATE
     Dosage: UNK
     Route: 048
     Dates: start: 2006
  3. ATRIPLA [Suspect]
     Active Substance: EFAVIRENZ\EMTRICITABINE\TENOFOVIR DISOPROXIL FUMARATE
     Dosage: UNK
     Route: 048
     Dates: start: 200608, end: 201609
  4. TRUVADA [Suspect]
     Active Substance: EMTRICITABINE\TENOFOVIR DISOPROXIL FUMARATE
     Indication: HIV infection
     Dosage: UNK
     Route: 065
     Dates: start: 200604, end: 200608
  5. GENVOYA [Concomitant]
     Active Substance: COBICISTAT\ELVITEGRAVIR\EMTRICITABINE\TENOFOVIR ALAFENAMIDE FUMARATE
  6. BIKTARVY [Concomitant]
     Active Substance: BICTEGRAVIR SODIUM\EMTRICITABINE\TENOFOVIR ALAFENAMIDE FUMARATE
  7. TRIUMEQ [Concomitant]
     Active Substance: ABACAVIR SULFATE\DOLUTEGRAVIR SODIUM\LAMIVUDINE
  8. ACYCLOVIR [Concomitant]
     Active Substance: ACYCLOVIR
  9. ALBUTEROL [Concomitant]
     Active Substance: ALBUTEROL
  10. AMOXICILLIN [Concomitant]
     Active Substance: AMOXICILLIN
  11. ATORVASTATIN [Concomitant]
     Active Substance: ATORVASTATIN
  12. ATROVENT [Concomitant]
     Active Substance: IPRATROPIUM BROMIDE
  13. ATROVENT HFA [Concomitant]
     Active Substance: IPRATROPIUM BROMIDE
  14. AZITHROMYCIN [Concomitant]
     Active Substance: AZITHROMYCIN
  15. BUPROPION [Concomitant]
     Active Substance: BUPROPION
  16. CEPHALEXIN [Concomitant]
     Active Substance: CEPHALEXIN
  17. CHANTIX [Concomitant]
     Active Substance: VARENICLINE TARTRATE
  18. DOXYCYCLINE [Concomitant]
     Active Substance: DOXYCYCLINE
  19. CIPROFLOXACIN [Concomitant]
     Active Substance: CIPROFLOXACIN
  20. CLONAZEPAM [Concomitant]
     Active Substance: CLONAZEPAM
  21. DULOXETINE [Concomitant]
     Active Substance: DULOXETINE
  22. ESCITALOPRAM [Concomitant]
     Active Substance: ESCITALOPRAM OXALATE
  23. FLUTICASONE [Concomitant]
     Active Substance: FLUTICASONE
  24. GEODON [Concomitant]
     Active Substance: ZIPRASIDONE HYDROCHLORIDE\ZIPRASIDONE MESYLATE
  25. HYDROXYZINE [Concomitant]
     Active Substance: HYDROXYZINE HYDROCHLORIDE
  26. LEVOFLOXACIN [Concomitant]
     Active Substance: LEVOFLOXACIN
  27. LIPITOR [Concomitant]
     Active Substance: ATORVASTATIN CALCIUM
  28. LORATADINE [Concomitant]
     Active Substance: LORATADINE
  29. MEGACE [Concomitant]
     Active Substance: MEGESTROL ACETATE
  30. MEGESTROL [Concomitant]
     Active Substance: MEGESTROL
  31. MELOXICAM [Concomitant]
     Active Substance: MELOXICAM
  32. METHYLPREDNISOLONE [Concomitant]
     Active Substance: METHYLPREDNISOLONE
  33. MIRTAZAPINE [Concomitant]
     Active Substance: MIRTAZAPINE
  34. MUPIROCIN [Concomitant]
     Active Substance: MUPIROCIN
  35. NASONEX [Concomitant]
     Active Substance: MOMETASONE FUROATE
  36. NICOTINE [Concomitant]
     Active Substance: NICOTINE
  37. OXYBUTYNIN [Concomitant]
     Active Substance: OXYBUTYNIN\OXYBUTYNIN CHLORIDE
  38. PAXIL [Concomitant]
     Active Substance: PAROXETINE HYDROCHLORIDE
  39. PRAVASTATIN [Concomitant]
     Active Substance: PRAVASTATIN
  40. PREDNISONE [Concomitant]
     Active Substance: PREDNISONE
  41. PROAIR HFA [Concomitant]
     Active Substance: ALBUTEROL SULFATE
  42. PROMETHAZINE [Concomitant]
     Active Substance: PROMETHAZINE HYDROCHLORIDE
  43. RANITIDINE [Concomitant]
     Active Substance: RANITIDINE
  44. SERTRALINE [Concomitant]
     Active Substance: SERTRALINE HYDROCHLORIDE
  45. PROVENTIL HFA [SALBUTAMOL] [Concomitant]
  46. SULFAMETHOXAZOLE\TRIMETHOPRIM [Concomitant]
     Active Substance: SULFAMETHOXAZOLE\TRIMETHOPRIM
  47. SYMBICORT [Concomitant]
     Active Substance: BUDESONIDE\FORMOTEROL FUMARATE DIHYDRATE
  48. TIZANIDINE [Concomitant]
     Active Substance: TIZANIDINE
  49. TRAZODONE [Concomitant]
     Active Substance: TRAZODONE HYDROCHLORIDE
  50. ZOLPIDEM [Concomitant]
     Active Substance: ZOLPIDEM TARTRATE
  51. UNIVASC [Concomitant]
     Active Substance: MOEXIPRIL HYDROCHLORIDE
  52. LISINOPRIL [Concomitant]
     Active Substance: LISINOPRIL
  53. CYPROHEPTADINE HYDROCHLORIDE [Concomitant]
     Active Substance: CYPROHEPTADINE HYDROCHLORIDE
  54. GAVILYTE G [Concomitant]
     Active Substance: POLYETHYLENE GLYCOL 3350\POTASSIUM CHLORIDE\SODIUM BICARBONATE\SODIUM CHLORIDE\SODIUM SULFATE

REACTIONS (10)
  - Rib fracture [Not Recovered/Not Resolved]
  - Osteoporosis [Not Recovered/Not Resolved]
  - Chronic kidney disease [Not Recovered/Not Resolved]
  - Renal impairment [Not Recovered/Not Resolved]
  - Spinal osteoarthritis [Unknown]
  - Anhedonia [Unknown]
  - Emotional distress [Unknown]
  - Anxiety [Unknown]
  - Pain [Unknown]
  - Gait disturbance [Unknown]

NARRATIVE: CASE EVENT DATE: 20170303
